FAERS Safety Report 12971580 (Version 1)
Quarter: 2016Q4

REPORT INFORMATION
  Report Type: Spontaneous
  Country: US (occurrence: US)
  Receive Date: 20161123
  Receipt Date: 20161123
  Transmission Date: 20170207
  Serious: No
  Sender: FDA-Public Use
  Company Number: US-JNJFOC-20161121555

PATIENT

DRUGS (2)
  1. ZYRTEC [Suspect]
     Active Substance: CETIRIZINE HYDROCHLORIDE
     Indication: EUPHORIC MOOD
     Route: 045
  2. ZYRTEC [Suspect]
     Active Substance: CETIRIZINE HYDROCHLORIDE
     Route: 045

REACTIONS (4)
  - Product use issue [Unknown]
  - Incorrect route of drug administration [Unknown]
  - Intentional product misuse [Unknown]
  - Wrong technique in product usage process [Unknown]
